FAERS Safety Report 4693220-2 (Version None)
Quarter: 2005Q2

REPORT INFORMATION
  Report Type: 
  Country: None (occurrence: None)
  Receive Date: 20050617
  Receipt Date: 20050603
  Transmission Date: 20051028
  Serious: Yes (Other)
  Sender: FDA-Public Use
  Company Number: US-GLAXOSMITHKLINE-A0561084A

PATIENT
  Age: 35 Year
  Sex: Male

DRUGS (1)
  1. NICORETTE [Suspect]
     Route: 002
     Dates: start: 20030101

REACTIONS (2)
  - NASOPHARYNGITIS [None]
  - NEOPLASM MALIGNANT [None]
